FAERS Safety Report 6897686-9 (Version None)
Quarter: 2010Q3

REPORT INFORMATION
  Report Type: 
  Country: None (occurrence: None)
  Receive Date: 20100802
  Receipt Date: 20070621
  Transmission Date: 20110219
  Serious: Yes (Other)
  Sender: FDA-Public Use
  Company Number: US-PFIZER INC-2007054713

PATIENT
  Sex: Female

DRUGS (1)
  1. LYRICA [Suspect]

REACTIONS (13)
  - ABDOMINAL DISCOMFORT [None]
  - BREAST PAIN [None]
  - BREAST SWELLING [None]
  - DECREASED INTEREST [None]
  - DIARRHOEA [None]
  - DIPLOPIA [None]
  - DIZZINESS [None]
  - FATIGUE [None]
  - FEELING ABNORMAL [None]
  - OEDEMA [None]
  - OEDEMA PERIPHERAL [None]
  - TREMOR [None]
  - WEIGHT INCREASED [None]
